FAERS Safety Report 5132405-8 (Version None)
Quarter: 2006Q4

REPORT INFORMATION
  Report Type: 
  Country: None (occurrence: None)
  Receive Date: 20061017
  Receipt Date: 20061003
  Transmission Date: 20070319
  Serious: Yes (Hospitalization)
  Sender: FDA-Public Use
  Company Number: 230680

PATIENT
  Age: 56 Year
  Sex: Male
  Weight: 78 kg

DRUGS (14)
  1. RITUXIMAB(RITUXIMAB) CONC FOR SOLUTION FOR INFUSION [Suspect]
     Indication: CHRONIC LYMPHOCYTIC LEUKAEMIA
     Dates: start: 20050501
  2. FLUDARA [Suspect]
     Indication: CHRONIC LYMPHOCYTIC LEUKAEMIA
     Dates: start: 20050501
  3. CAMPATH [Suspect]
     Indication: CHRONIC LYMPHOCYTIC LEUKAEMIA
     Dosage: UNK, 3/WEEK, SUBCUTANEOUS
     Route: 058
     Dates: start: 20060501, end: 20060602
  4. LOTREL (AMLODIPINE BESYLATE, BENAZEPHRIL HYDROCHLORIDE) [Concomitant]
  5. ARANESP [Concomitant]
  6. PROTONIX [Concomitant]
  7. MYCELEX [Concomitant]
  8. BACTRIM [Concomitant]
  9. DIPHENHYDRAMINE (DIPHENHYDRAMINE NOS) [Concomitant]
  10. ACETAMINOPHEN [Concomitant]
  11. ALLOPURINOL [Concomitant]
  12. NORVASC [Concomitant]
  13. LOPRESSOR [Concomitant]
  14. SULFAMETHOXAZOLE + TRIMETHOPRIM [Concomitant]

REACTIONS (15)
  - ABDOMINAL DISCOMFORT [None]
  - ASTHENIA [None]
  - CELLULITIS [None]
  - CULTURE POSITIVE [None]
  - CYTOMEGALOVIRUS INFECTION [None]
  - DEHYDRATION [None]
  - DIARRHOEA [None]
  - HAEMODIALYSIS [None]
  - HYPOVOLAEMIA [None]
  - NAUSEA [None]
  - PYREXIA [None]
  - RENAL FAILURE ACUTE [None]
  - STAPHYLOCOCCAL INFECTION [None]
  - THERAPY NON-RESPONDER [None]
  - VOMITING [None]
